FAERS Safety Report 5204174-4 (Version None)
Quarter: 2007Q1

REPORT INFORMATION
  Report Type: 
  Country: None (occurrence: None)
  Receive Date: 20070110
  Receipt Date: 20051227
  Transmission Date: 20070707
  Serious: No
  Sender: FDA-Public Use
  Company Number: US-BRISTOL-MYERS SQUIBB COMPANY-13229182

PATIENT
  Age: 49 Year
  Sex: Female
  Weight: 136 kg

DRUGS (4)
  1. ABILIFY [Suspect]
     Route: 048
     Dates: start: 20051201
  2. TRAZODONE HCL [Concomitant]
     Route: 048
  3. PAXIL [Concomitant]
  4. CLONAZEPAM [Concomitant]

REACTIONS (2)
  - ANXIETY [None]
  - SOMNOLENCE [None]
